FAERS Safety Report 4358259-5 (Version None)
Quarter: 2004Q2

REPORT INFORMATION
  Report Type: 
  Country: None (occurrence: None)
  Receive Date: 20040511
  Receipt Date: 20040511
  Transmission Date: 20050107
  Serious: Yes (Life-Threatening, Hospitalization)
  Sender: FDA-Public Use
  Company Number: None

PATIENT
  Age: 62 Year
  Sex: Male
  Weight: 104.8 kg

DRUGS (13)
  1. SPIRONOLACTONE [Suspect]
  2. SILDENAFIL [Concomitant]
  3. THIAMINE [Concomitant]
  4. NADOLOL [Concomitant]
  5. OMEPRAZOLE [Concomitant]
  6. FOLIC ACID [Concomitant]
  7. RABEPRAZOLE SODIUM [Concomitant]
  8. GLYBURIDE [Concomitant]
  9. MULTI-VITAMIN [Concomitant]
  10. TEMAZEPAM [Concomitant]
  11. ASPIRIN [Concomitant]
  12. LACTULOSE [Concomitant]
  13. MAGNESIUM GLUCONATE [Concomitant]

REACTIONS (2)
  - BREAST TENDERNESS [None]
  - HYPERKALAEMIA [None]
